FAERS Safety Report 7427042-6 (Version None)
Quarter: 2011Q2

REPORT INFORMATION
  Report Type: 
  Country: None (occurrence: None)
  Receive Date: 20110420
  Receipt Date: 20110418
  Transmission Date: 20111010
  Serious: Yes (Hospitalization)
  Sender: FDA-Public Use
  Company Number: US-GILEAD-2011-0038019

PATIENT
  Age: 29 Year
  Sex: Male
  Weight: 99.1 kg

DRUGS (7)
  1. EMTRICITABINE/TENOFOVIR DISOPROXIL FUMARATE [Suspect]
     Dates: start: 20100901, end: 20110310
  2. REYATAZ [Suspect]
     Indication: HIV INFECTION
     Dates: start: 20110310, end: 20110314
  3. ATRIPLA [Concomitant]
     Dates: end: 20110310
  4. EMTRICITABINE/TENOFOVIR DISOPROXIL FUMARATE [Suspect]
     Indication: HIV INFECTION
     Dates: start: 20110314
  5. NORVIR [Suspect]
     Indication: HIV INFECTION
     Dates: start: 20110310, end: 20110314
  6. ATRIPLA [Concomitant]
     Indication: HIV INFECTION
     Dates: start: 20110314
  7. ZOLOFT [Concomitant]
     Indication: DEPRESSION
     Route: 048

REACTIONS (1)
  - GASTROINTESTINAL TOXICITY [None]
